FAERS Safety Report 12833689 (Version 2)
Quarter: 2017Q1

REPORT INFORMATION
  Report Type: Report from Study
  Country: US (occurrence: US)
  Receive Date: 20161010
  Receipt Date: 20170125
  Transmission Date: 20170428
  Serious: No
  Sender: FDA-Public Use
  Company Number: PHEH2016US025771

PATIENT
  Sex: Female

DRUGS (1)
  1. VOTRIENT [Suspect]
     Active Substance: PAZOPANIB HYDROCHLORIDE
     Indication: PRODUCT USED FOR UNKNOWN INDICATION
     Route: 065

REACTIONS (2)
  - Malaise [Unknown]
  - Fatigue [Unknown]
